FAERS Safety Report 8359709-X (Version None)
Quarter: 2012Q1

REPORT INFORMATION
  Report Type: 
  Country: None (occurrence: None)
  Receive Date: 20120315
  Receipt Date: 20110614
  Transmission Date: 20120608
  Serious: Yes (Other)
  Sender: FDA-Public Use
  Company Number: PHHY2011US44356

PATIENT
  Age: 58 Year
  Sex: Female
  Weight: 60.782 kg

DRUGS (18)
  1. GILENYA [Suspect]
     Indication: RELAPSING-REMITTING MULTIPLE SCLEROSIS
     Dosage: 0.5 MG, QD, ORAL
     Route: 048
     Dates: start: 20110210, end: 20110513
  2. EYE DROPS (TETRYZOLINE HYDROCHLORIDE) [Concomitant]
  3. COUMADIN [Concomitant]
  4. TOPAMAX [Concomitant]
  5. FIORICET [Concomitant]
  6. MAGNESIUM SUPPLEMENTS (MAGNESIUM) [Concomitant]
  7. VITAMIN B12 [Concomitant]
  8. AMBIEN [Concomitant]
  9. GABAPENTIN [Concomitant]
  10. LEXAPRO [Concomitant]
  11. TRAMADOL HCL [Concomitant]
  12. PREVACID [Concomitant]
  13. SIMBASTATIN (SIMVASTATIN) [Concomitant]
  14. MACRODANTIN [Concomitant]
  15. DILAUDID [Concomitant]
  16. BIOTIN (BIOTIN) [Concomitant]
  17. KLONOPIN [Concomitant]
  18. CLARINEX (LORATADINE, PSEUDOEPHEDRINE SULFATE) [Concomitant]

REACTIONS (7)
  - LEUKOPENIA [None]
  - GAIT DISTURBANCE [None]
  - COGNITIVE DISORDER [None]
  - SENSORY LOSS [None]
  - MIGRAINE [None]
  - DEPRESSION [None]
  - TREMOR [None]
